FAERS Safety Report 11610276 (Version 3)
Quarter: 2015Q4

REPORT INFORMATION
  Report Type: Report from Study
  Country: US (occurrence: US)
  Receive Date: 20151008
  Receipt Date: 20151019
  Transmission Date: 20160304
  Serious: No
  Sender: FDA-Public Use
  Company Number: US-AMGEN-USASL2015103687

PATIENT
  Sex: Female

DRUGS (1)
  1. ENBREL [Suspect]
     Active Substance: ETANERCEPT
     Indication: PSORIASIS
     Dosage: 50 MG, QWK
     Route: 065

REACTIONS (11)
  - Drug dose omission [Unknown]
  - Drug ineffective [Unknown]
  - Depressed mood [Unknown]
  - Crying [Unknown]
  - Pain [Unknown]
  - Skin haemorrhage [Unknown]
  - Skin disorder [Unknown]
  - Pruritus [Unknown]
  - Scratch [Unknown]
  - Feeling abnormal [Unknown]
  - Vomiting [Unknown]
